FAERS Safety Report 11700096 (Version 1)
Quarter: 2015Q4

REPORT INFORMATION
  Report Type: Spontaneous
  Country: US (occurrence: US)
  Receive Date: 20151105
  Receipt Date: 20151105
  Transmission Date: 20160304
  Serious: Yes (Hospitalization)
  Sender: FDA-Public Use
  Company Number: US-ROCHE-1638556

PATIENT
  Sex: Male
  Weight: 133.93 kg

DRUGS (1)
  1. PIRFENIDONE [Suspect]
     Active Substance: PIRFENIDONE
     Indication: IDIOPATHIC PULMONARY FIBROSIS
     Dosage: 3 CAPSULES THRICE A DAY
     Route: 048
     Dates: start: 20150213

REACTIONS (9)
  - Asthenia [Unknown]
  - Decreased appetite [Unknown]
  - Infection [Unknown]
  - Thrombosis [Unknown]
  - Nerve compression [Unknown]
  - Sepsis [Unknown]
  - Fatigue [Unknown]
  - Neuropathy peripheral [Unknown]
  - Weight decreased [Unknown]
